FAERS Safety Report 6716583-2 (Version None)
Quarter: 2010Q2

REPORT INFORMATION
  Report Type: 
  Country: None (occurrence: None)
  Receive Date: 20100507
  Receipt Date: 20100428
  Transmission Date: 20101027
  Serious: Yes (Life-Threatening, Hospitalization, Disabling, Other)
  Sender: FDA-Public Use
  Company Number: RO-ABBOTT-09P-135-0598116-00

PATIENT
  Sex: Male
  Weight: 95 kg

DRUGS (5)
  1. HUMIRA [Suspect]
     Indication: RHEUMATOID ARTHRITIS
     Route: 058
     Dates: start: 20060101, end: 20081030
  2. OTHER MONOCLONAL ANTIBODIES (PRODUCT NAMES NOT REPORTED) [Suspect]
     Indication: RHEUMATOID ARTHRITIS
  3. OTHER DMARDS DRUGS (PRODUCT NAMES NOT REPORTED) [Suspect]
     Indication: RHEUMATOID ARTHRITIS
  4. CORTICOSTEROIDS [Suspect]
     Indication: RHEUMATOID ARTHRITIS
  5. MEDROL [Concomitant]
     Indication: RHEUMATOID ARTHRITIS
     Route: 048

REACTIONS (21)
  - ANAL ABSCESS [None]
  - ARRHYTHMIA [None]
  - BEDRIDDEN [None]
  - CAVERNOUS SINUS THROMBOSIS [None]
  - COGNITIVE DISORDER [None]
  - COMMUNICATION DISORDER [None]
  - CONFUSIONAL STATE [None]
  - CONJUNCTIVITIS [None]
  - DEHYDRATION [None]
  - DEMENTIA [None]
  - DEPRESSION [None]
  - ESCHAR [None]
  - EXOPHTHALMOS [None]
  - GENERAL PHYSICAL HEALTH DETERIORATION [None]
  - HAEMORRHOIDS [None]
  - INFECTED SKIN ULCER [None]
  - OPHTHALMOPLEGIA [None]
  - PNEUMONIA [None]
  - PROGRESSIVE MULTIFOCAL LEUKOENCEPHALOPATHY [None]
  - PYREXIA [None]
  - URINARY TRACT INFECTION [None]
